FAERS Safety Report 14401573 (Version 1)
Quarter: 2018Q1

REPORT INFORMATION
  Report Type: Spontaneous
  Country: US (occurrence: US)
  Receive Date: 20180115
  Receipt Date: 20180115
  Transmission Date: 20180509
  Serious: No
  Sender: FDA-Public Use
  Company Number: None

PATIENT
  Sex: Female

DRUGS (2)
  1. CAPECITABINE 500MG AMNEAL [Suspect]
     Active Substance: CAPECITABINE
     Indication: COLON CANCER
     Dosage: FREQUENCY - TWICE DAILY FOR 14 DAYS ON THEN 7 DAYS OFF
     Route: 048
     Dates: start: 20170926
  2. CAPECITABINE 150MG AMNEAL [Suspect]
     Active Substance: CAPECITABINE
     Indication: COLON CANCER
     Dosage: FREQUENCY - TWICE DAILY FOR 14 DAYS ON THEN 7 DAYS OFF
     Route: 048
     Dates: start: 20170925

REACTIONS (2)
  - Vision blurred [None]
  - Pain in extremity [None]
